FAERS Safety Report 8915303 (Version 4)
Quarter: 2013Q2

REPORT INFORMATION
  Report Type: Spontaneous
  Country: JP (occurrence: JP)
  Receive Date: 20121119
  Receipt Date: 20130613
  Transmission Date: 20140414
  Serious: Yes (Death, Life-Threatening, Hospitalization)
  Sender: FDA-Public Use
  Company Number: JP-ROCHE-1156043

PATIENT
  Age: 76 Year
  Sex: Male
  Weight: 56 kg

DRUGS (18)
  1. HERCEPTIN [Suspect]
     Indication: GASTRIC CANCER
     Route: 041
     Dates: start: 20120821, end: 20120821
  2. HERCEPTIN [Suspect]
     Indication: GASTRIC CANCER
     Route: 041
     Dates: start: 20120911, end: 20121031
  3. XELODA [Suspect]
     Indication: GASTRIC CANCER
     Route: 048
     Dates: start: 20120821, end: 20121103
  4. CISPLATIN [Suspect]
     Indication: GASTRIC CANCER
     Route: 041
     Dates: start: 20120821, end: 20121030
  5. OLMETEC [Concomitant]
     Route: 048
  6. NORVASC [Concomitant]
     Dosage: DOSAGE IS UNCERTAIN.
     Route: 048
     Dates: start: 20120824
  7. OXYCONTIN [Concomitant]
     Route: 048
     Dates: start: 20120824
  8. MAGLAX [Concomitant]
     Route: 048
     Dates: start: 20120824
  9. PROCHLORPERAZINE MALEATE [Concomitant]
     Route: 048
     Dates: start: 20120825
  10. ZYLORIC [Concomitant]
     Route: 048
     Dates: start: 20120910
  11. ALOXI [Concomitant]
     Dosage: DOSAGE IS UNCERTAIN.
     Route: 065
  12. DECADRON [Concomitant]
     Dosage: DOSAGE IS UNCERTAIN.
     Route: 065
  13. OXINORM (JAPAN) [Concomitant]
     Route: 048
     Dates: start: 20121001
  14. HUMALOG [Concomitant]
     Route: 058
  15. AMARYL [Concomitant]
     Route: 048
     Dates: start: 20110301
  16. PARIET [Concomitant]
     Route: 048
     Dates: start: 20120803
  17. EMEND [Concomitant]
     Route: 048
     Dates: start: 20120821
  18. LOXONIN [Concomitant]
     Route: 048
     Dates: start: 20120823, end: 20120825

REACTIONS (4)
  - Interstitial lung disease [Fatal]
  - Hyperglycaemic hyperosmolar nonketotic syndrome [Unknown]
  - Renal impairment [Unknown]
  - Hepatic function abnormal [Unknown]
